FAERS Safety Report 19195305 (Version 1)
Quarter: 2021Q2

REPORT INFORMATION
  Report Type: Spontaneous
  Country: US (occurrence: US)
  Receive Date: 20210429
  Receipt Date: 20210429
  Transmission Date: 20210717
  Serious: Yes (Hospitalization, Other)
  Sender: FDA-Public Use
  Company Number: US-GLAXOSMITHKLINE-US2021GSK091806

PATIENT
  Age: 55 Year
  Sex: Male

DRUGS (1)
  1. VALACICLOVIR [Suspect]
     Active Substance: VALACYCLOVIR HYDROCHLORIDE
     Indication: ORAL HERPES
     Dosage: 4 G, 1D
     Route: 048

REACTIONS (7)
  - Affect lability [Recovered/Resolved]
  - Confusional state [Recovered/Resolved]
  - Crying [Recovered/Resolved]
  - Neurotoxicity [Recovered/Resolved]
  - Diarrhoea [Recovered/Resolved]
  - Drug dose titration not performed [Unknown]
  - Prescribed overdose [Unknown]
